FAERS Safety Report 6097277-6 (Version None)
Quarter: 2009Q1

REPORT INFORMATION
  Report Type: 
  Country: None (occurrence: None)
  Receive Date: 20090226
  Receipt Date: 20090226
  Transmission Date: 20090719
  Serious: Yes (Hospitalization)
  Sender: FDA-Public Use
  Company Number: None

PATIENT
  Age: 55 Year
  Sex: Female
  Weight: 56.6996 kg

DRUGS (1)
  1. ZOLPIDEM TARTRATE [Suspect]
     Indication: INSOMNIA
     Dosage: 10 MG. ONCE A DAY PO
     Route: 048
     Dates: start: 20090218, end: 20090219

REACTIONS (5)
  - BACK PAIN [None]
  - BALANCE DISORDER [None]
  - FATIGUE [None]
  - FLUSHING [None]
  - TREMOR [None]
